FAERS Safety Report 10929871 (Version 1)
Quarter: 2015Q1

REPORT INFORMATION
  Report Type: Spontaneous
  Country: US (occurrence: None)
  Receive Date: 20150318
  Receipt Date: 20150318
  Transmission Date: 20150721
  Serious: No
  Sender: FDA-Public Use
  Company Number: None

PATIENT
  Age: 31 Year
  Sex: Female
  Weight: 68.04 kg

DRUGS (6)
  1. CLARITHROMYCIN EXTENDED RELEASE [Suspect]
     Active Substance: CLARITHROMYCIN
     Indication: UPPER RESPIRATORY TRACT INFECTION
     Dosage: 2 TABS DAILY WITH FOOD
     Route: 048
     Dates: start: 20150313, end: 20150317
  2. CLARITHROMYCIN. [Concomitant]
     Active Substance: CLARITHROMYCIN
  3. ALEVE [Concomitant]
     Active Substance: NAPROXEN SODIUM
  4. CLARITHROMYCIN EXTENDED RELEASE [Suspect]
     Active Substance: CLARITHROMYCIN
     Indication: BRONCHITIS
     Dosage: 2 TABS DAILY WITH FOOD
     Route: 048
     Dates: start: 20150313, end: 20150317
  5. TESSLON PEARLS [Concomitant]
  6. LEMON GINGER TEA [Concomitant]
     Active Substance: TEA LEAF

REACTIONS (11)
  - Depression [None]
  - Anxiety [None]
  - Nausea [None]
  - Dysgeusia [None]
  - Impaired work ability [None]
  - Vomiting [None]
  - Abdominal pain upper [None]
  - Malaise [None]
  - Insomnia [None]
  - Abnormal dreams [None]
  - Night sweats [None]

NARRATIVE: CASE EVENT DATE: 20150313
